FAERS Safety Report 15001058 (Version 1)
Quarter: 2018Q2

REPORT INFORMATION
  Report Type: Spontaneous
  Country: TN (occurrence: TN)
  Receive Date: 20180612
  Receipt Date: 20180612
  Transmission Date: 20180711
  Serious: Yes (Hospitalization)
  Sender: FDA-Public Use
  Company Number: TN-AKORN PHARMACEUTICALS-2018AKN00784

PATIENT
  Age: 53 Year
  Sex: Male

DRUGS (5)
  1. RIFAMPIN, ISONIAZID, PYRAZINAMIDE, AND ETHAMBUTOL [Suspect]
     Active Substance: ETHAMBUTOL\ISONIAZID\PYRAZINAMIDE\RIFAMPIN
     Indication: PULMONARY TUBERCULOSIS
     Dosage: 5 TABLETS, 1X/DAY (ISONIAZID 75 MG, RIFAMPICIN 150 MG, ETHAMBUTOL 275 MG, PYRAZINAMIDE 400 MG)
     Route: 065
  2. RIFAMPIN, ISONIAZID, PYRAZINAMIDE, AND ETHAMBUTOL [Suspect]
     Active Substance: ETHAMBUTOL\ISONIAZID\PYRAZINAMIDE\RIFAMPIN
     Dosage: RIFAMPICIN MONOTHERAPY
     Route: 065
  3. ETHAMBUTOL [Concomitant]
     Active Substance: ETHAMBUTOL HYDROCHLORIDE
     Indication: PULMONARY TUBERCULOSIS
     Dosage: MONOTHERAPY
     Route: 065
  4. PYRAZINAMIDE. [Concomitant]
     Active Substance: PYRAZINAMIDE
     Indication: PULMONARY TUBERCULOSIS
     Dosage: MONOTHERAPY
     Route: 065
  5. ISONIAZID. [Concomitant]
     Active Substance: ISONIAZID
     Indication: PULMONARY TUBERCULOSIS
     Dosage: MONOTHERAPY
     Route: 065

REACTIONS (1)
  - Lichenoid keratosis [Recovered/Resolved]
